FAERS Safety Report 10042179 (Version 1)
Quarter: 2014Q1

REPORT INFORMATION
  Report Type: Spontaneous
  Country: US (occurrence: US)
  Receive Date: 20140327
  Receipt Date: 20140327
  Transmission Date: 20141002
  Serious: Yes (Other)
  Sender: FDA-Public Use
  Company Number: US-GLAXOSMITHKLINE-A1066100A

PATIENT
  Age: 79 Year
  Sex: Female

DRUGS (21)
  1. LOVAZA [Suspect]
     Indication: BLOOD TRIGLYCERIDES INCREASED
     Dosage: 4CAP PER DAY
     Route: 048
     Dates: start: 2007
  2. LEVOTHYROXIN [Concomitant]
  3. ALENDRONATE [Concomitant]
  4. DETROL LA [Concomitant]
  5. NEXIUM [Concomitant]
  6. FLONASE [Concomitant]
  7. PRAVASTATIN [Concomitant]
  8. CITALOPRAM [Concomitant]
  9. FOLIC ACID [Concomitant]
  10. DEPLIN [Concomitant]
  11. ASPIRIN [Concomitant]
  12. VITAMIN B COMPLEX 100 [Concomitant]
  13. VITAMIN D [Concomitant]
  14. VITAMIN B12 [Concomitant]
  15. VITAMIN E [Concomitant]
  16. MULTIVITAMIN [Concomitant]
  17. CO Q 10 [Concomitant]
  18. CALCIUM [Concomitant]
  19. ALLEGRA [Concomitant]
  20. UNKNOWN MEDICATION [Concomitant]
  21. FIBER [Concomitant]

REACTIONS (7)
  - Cardiac operation [Unknown]
  - Aortic valve replacement [Unknown]
  - Coronary artery bypass [Unknown]
  - Fatigue [Not Recovered/Not Resolved]
  - Asthenia [Not Recovered/Not Resolved]
  - Gait disturbance [Not Recovered/Not Resolved]
  - Dyspnoea [Not Recovered/Not Resolved]
